FAERS Safety Report 22186173 (Version 1)
Quarter: 2023Q2

REPORT INFORMATION
  Report Type: Spontaneous
  Country: US (occurrence: US)
  Receive Date: 20230407
  Receipt Date: 20230407
  Transmission Date: 20230721
  Serious: Yes (Other)
  Sender: FDA-Public Use
  Company Number: US-GLAXOSMITHKLINE-US2023AMR050687

PATIENT

DRUGS (1)
  1. ZEJULA [Suspect]
     Active Substance: NIRAPARIB
     Indication: Neoplasm malignant
     Dosage: 300 MG, QD
     Dates: start: 20230322, end: 20230324

REACTIONS (4)
  - Cardiac flutter [Unknown]
  - Heart rate increased [Unknown]
  - Tinnitus [Unknown]
  - Insomnia [Unknown]

NARRATIVE: CASE EVENT DATE: 20230322
